FAERS Safety Report 5655040-1 (Version None)
Quarter: 2008Q1

REPORT INFORMATION
  Report Type: 
  Country: None (occurrence: None)
  Receive Date: 20080307
  Receipt Date: 20071101
  Transmission Date: 20080703
  Serious: No
  Sender: FDA-Public Use
  Company Number: A0691005A

PATIENT
  Age: 53 Year
  Sex: Male

DRUGS (2)
  1. REQUIP [Suspect]
     Indication: PERIODIC LIMB MOVEMENT DISORDER
     Dosage: 1MG TWICE PER DAY
     Route: 048
     Dates: start: 20070401, end: 20071025
  2. KLONOPIN [Suspect]
     Indication: DRUG USE FOR UNKNOWN INDICATION
     Route: 048

REACTIONS (1)
  - WITHDRAWAL SYNDROME [None]
